FAERS Safety Report 9031266 (Version 1)
Quarter: 2013Q1

REPORT INFORMATION
  Report Type: Spontaneous
  Country: TR (occurrence: TR)
  Receive Date: 20130123
  Receipt Date: 20130123
  Transmission Date: 20140127
  Serious: Yes (Hospitalization)
  Sender: FDA-Public Use
  Company Number: TR-MYLANLABS-2013S1000983

PATIENT
  Age: 25 Year
  Sex: Male

DRUGS (3)
  1. TACROLIMUS [Suspect]
     Indication: IMMUNOSUPPRESSANT DRUG THERAPY
     Dosage: 1MG TABLET (2 X 2)
     Route: 065
  2. MYCOPHENOLATE MOFETIL [Concomitant]
     Route: 065
  3. PREDNISOLONE [Concomitant]
     Dosage: 5MG (1 X 1)
     Route: 065

REACTIONS (3)
  - Depression [Recovered/Resolved]
  - Hypomania [Recovered/Resolved]
  - Suicidal ideation [Recovered/Resolved]
